FAERS Safety Report 7884826-8 (Version None)
Quarter: 2011Q4

REPORT INFORMATION
  Report Type: 
  Country: None (occurrence: None)
  Receive Date: 20111102
  Receipt Date: 20111024
  Transmission Date: 20120403
  Serious: Yes (Other)
  Sender: FDA-Public Use
  Company Number: PHHY2011JP94649

PATIENT
  Sex: Male

DRUGS (2)
  1. DIOVAN [Suspect]
     Dosage: 20 MG, QD
     Route: 048
  2. DIOVAN [Suspect]
     Dosage: 10 MG, QD
     Route: 048

REACTIONS (2)
  - NEOPLASM [None]
  - BACK PAIN [None]
